FAERS Safety Report 6084959-5 (Version None)
Quarter: 2009Q1

REPORT INFORMATION
  Report Type: 
  Country: None (occurrence: None)
  Receive Date: 20090220
  Receipt Date: 20090212
  Transmission Date: 20090719
  Serious: Yes (Other)
  Sender: FDA-Public Use
  Company Number: FR-ALLERGAN-0902044US

PATIENT

DRUGS (1)
  1. REFRESH [Suspect]
     Indication: INTRAOPERATIVE CARE

REACTIONS (1)
  - KERATITIS [None]
